FAERS Safety Report 4935152-8 (Version None)
Quarter: 2006Q1

REPORT INFORMATION
  Report Type: 
  Country: None (occurrence: None)
  Receive Date: 20060306
  Receipt Date: 20060306
  Transmission Date: 20060701
  Serious: No
  Sender: FDA-Public Use
  Company Number: None

PATIENT
  Age: 50 Year

DRUGS (1)
  1. SKELAXIN [Suspect]
     Indication: MUSCLE SPASMS
     Dosage: 400MG AS DIRECT PO
     Route: 048
     Dates: start: 20060112, end: 20060112

REACTIONS (2)
  - BURNING SENSATION [None]
  - ERYTHEMA [None]
